FAERS Safety Report 6258688-9 (Version None)
Quarter: 2009Q3

REPORT INFORMATION
  Report Type: 
  Country: None (occurrence: None)
  Receive Date: 20090707
  Receipt Date: 20090305
  Transmission Date: 20100115
  Serious: Yes (Life-Threatening, Hospitalization)
  Sender: FDA-Public Use
  Company Number: JP-ABBOTT-09P-087-0560562-00

PATIENT
  Age: 10 Month
  Sex: Male
  Weight: 8.45 kg

DRUGS (17)
  1. CLARITH DS [Suspect]
     Indication: UPPER RESPIRATORY TRACT INFECTION
     Route: 048
     Dates: start: 20080108
  2. MUCODYNE [Suspect]
     Indication: DRUG USE FOR UNKNOWN INDICATION
     Route: 048
     Dates: start: 20080108
  3. ALPINY [Suspect]
     Indication: DRUG USE FOR UNKNOWN INDICATION
     Route: 054
     Dates: start: 20080109, end: 20080109
  4. COLD MEDICINE [Concomitant]
     Indication: UPPER RESPIRATORY TRACT INFECTION
     Route: 048
  5. PHENOBARBITAL TAB [Concomitant]
     Indication: DRUG USE FOR UNKNOWN INDICATION
     Dosage: UNKNOWN
     Dates: start: 20080311, end: 20080314
  6. DEPAKENE [Concomitant]
     Indication: DRUG USE FOR UNKNOWN INDICATION
     Dosage: UNKNOWN
     Dates: start: 20080314, end: 20080323
  7. WAKOBITAL [Concomitant]
     Indication: DRUG USE FOR UNKNOWN INDICATION
     Route: 054
     Dates: start: 20080302, end: 20080306
  8. ANHIBA [Concomitant]
     Indication: DRUG USE FOR UNKNOWN INDICATION
     Dosage: 100-200MG
     Route: 054
     Dates: start: 20080313, end: 20080315
  9. ANHIBA [Concomitant]
     Dosage: 100-200MG DAILY
     Route: 054
     Dates: start: 20080320, end: 20080326
  10. COCARL [Concomitant]
     Indication: DRUG USE FOR UNKNOWN INDICATION
     Dosage: UNKNOWN
  11. MYSTAN [Concomitant]
     Indication: DRUG USE FOR UNKNOWN INDICATION
     Dosage: UNKNOWN
     Dates: start: 20080331, end: 20080409
  12. DIAPP [Concomitant]
     Indication: CLONIC CONVULSION
     Route: 054
     Dates: start: 20080227
  13. DORMICUM [Concomitant]
     Indication: CONVULSION
     Route: 042
     Dates: start: 20080302, end: 20080304
  14. FENTANYL [Concomitant]
     Indication: CONVULSION
     Route: 042
     Dates: start: 20080303, end: 20080303
  15. LIDOCAINE [Concomitant]
     Indication: CONVULSION
     Route: 042
     Dates: start: 20080303, end: 20080303
  16. ALBUMIN (HUMAN) [Concomitant]
     Indication: HYPOVOLAEMIA
     Route: 042
     Dates: start: 20080303, end: 20080303
  17. IMMUNE GLOBULIN INTRAVENOUS (HUMAN) [Concomitant]
     Indication: KAWASAKI'S DISEASE
     Dates: start: 20080303, end: 20080303

REACTIONS (3)
  - CLONIC CONVULSION [None]
  - DRUG RASH WITH EOSINOPHILIA AND SYSTEMIC SYMPTOMS [None]
  - ENCEPHALITIS HERPES [None]
